FAERS Safety Report 18372955 (Version 1)
Quarter: 2020Q4

REPORT INFORMATION
  Report Type: Spontaneous
  Country: US (occurrence: US)
  Receive Date: 20201012
  Receipt Date: 20201012
  Transmission Date: 20210114
  Serious: Yes (Other)
  Sender: FDA-Public Use
  Company Number: US-PFIZER INC-2020389620

PATIENT
  Age: 69 Year
  Sex: Female
  Weight: 77.11 kg

DRUGS (1)
  1. XELJANZ XR [Suspect]
     Active Substance: TOFACITINIB CITRATE
     Indication: RHEUMATOID ARTHRITIS
     Dosage: 11 MG, 1X/DAY
     Route: 048
     Dates: start: 20200720, end: 20200904

REACTIONS (13)
  - Large intestinal ulcer [Unknown]
  - Nausea [Recovering/Resolving]
  - Insomnia [Recovering/Resolving]
  - Gastritis [Not Recovered/Not Resolved]
  - Enteritis [Unknown]
  - Fluid retention [Recovering/Resolving]
  - Breast pain [Unknown]
  - Urinary tract infection [Unknown]
  - Dyspepsia [Unknown]
  - Dyspnoea [Recovering/Resolving]
  - Back pain [Unknown]
  - Foreign body in throat [Unknown]
  - Asthenia [Recovering/Resolving]

NARRATIVE: CASE EVENT DATE: 202008
